FAERS Safety Report 25269837 (Version 2)
Quarter: 2025Q2

REPORT INFORMATION
  Report Type: Spontaneous
  Country: CN (occurrence: CN)
  Receive Date: 20250505
  Receipt Date: 20250509
  Transmission Date: 20250716
  Serious: Yes (Hospitalization)
  Sender: NOVARTIS
  Company Number: CN-002147023-NVSC2025CN069839

PATIENT
  Age: 68 Year
  Sex: Male
  Weight: 80 kg

DRUGS (1)
  1. CARBAMAZEPINE [Suspect]
     Active Substance: CARBAMAZEPINE
     Indication: Herpes zoster
     Dosage: 1.000 DOSAGE FORM, TID
     Route: 048
     Dates: start: 20240204, end: 20240204

REACTIONS (19)
  - Pyrexia [Unknown]
  - Hypersensitivity [Recovering/Resolving]
  - Lymphadenitis [Recovering/Resolving]
  - Dermatitis allergic [Unknown]
  - Anxiety [Unknown]
  - Occipital neuralgia [Recovering/Resolving]
  - White blood cell count increased [Unknown]
  - Neutrophil percentage increased [Unknown]
  - Lymphocyte percentage decreased [Unknown]
  - Eosinophil percentage decreased [Unknown]
  - Neutrophil count increased [Unknown]
  - Monocyte count increased [Unknown]
  - Platelet count decreased [Unknown]
  - Mean platelet volume increased [Unknown]
  - C-reactive protein increased [Unknown]
  - Serum amyloid A protein increased [Unknown]
  - Skin swelling [Recovering/Resolving]
  - Facial pain [Recovering/Resolving]
  - Hypoaesthesia [Recovering/Resolving]

NARRATIVE: CASE EVENT DATE: 20240205
